FAERS Safety Report 5755981-0 (Version None)
Quarter: 2008Q2

REPORT INFORMATION
  Report Type: 
  Country: None (occurrence: None)
  Receive Date: 20080602
  Receipt Date: 20080520
  Transmission Date: 20081010
  Serious: Yes (Hospitalization)
  Sender: FDA-Public Use
  Company Number: PHHY2008CA07672

PATIENT
  Sex: Male

DRUGS (5)
  1. CLOZARIL [Suspect]
     Indication: SCHIZOPHRENIA
     Dosage: 600 MG DAILY
     Route: 048
  2. FERROUS GLUCONATE [Concomitant]
  3. OMEPRAZOLE [Concomitant]
  4. URSODIOL [Concomitant]
  5. INSULIN [Concomitant]

REACTIONS (3)
  - DYSPHAGIA [None]
  - FALL [None]
  - PNEUMONIA [None]
